FAERS Safety Report 12919183 (Version 1)
Quarter: 2016Q4

REPORT INFORMATION
  Report Type: Spontaneous
  Country: US (occurrence: US)
  Receive Date: 20161108
  Receipt Date: 20161108
  Transmission Date: 20170207
  Serious: No
  Sender: FDA-Public Use
  Company Number: PHEH2016US028565

PATIENT
  Sex: Male

DRUGS (2)
  1. RIVASTIGMINE. [Suspect]
     Active Substance: RIVASTIGMINE
     Indication: PRODUCT USED FOR UNKNOWN INDICATION
     Route: 062
  2. EXELON PATCH [Suspect]
     Active Substance: RIVASTIGMINE
     Indication: PRODUCT USED FOR UNKNOWN INDICATION
     Route: 062

REACTIONS (1)
  - Drug ineffective [Unknown]
